FAERS Safety Report 7574740-X (Version None)
Quarter: 2011Q2

REPORT INFORMATION
  Report Type: 
  Country: None (occurrence: None)
  Receive Date: 20110627
  Receipt Date: 20110622
  Transmission Date: 20111010
  Serious: Yes (Other)
  Sender: FDA-Public Use
  Company Number: GXKR2011DE02073

PATIENT
  Sex: Female

DRUGS (1)
  1. TAMSULOSIN HCL [Suspect]
     Indication: BLADDER DISORDER
     Dosage: 0.4 MG, QD
     Route: 048
     Dates: start: 20070101

REACTIONS (1)
  - MACULAR DEGENERATION [None]
